FAERS Safety Report 25634848 (Version 1)
Quarter: 2025Q3

REPORT INFORMATION
  Report Type: Spontaneous
  Country: US (occurrence: US)
  Receive Date: 20250801
  Receipt Date: 20250801
  Transmission Date: 20251020
  Serious: Yes (Death)
  Sender: AMGEN
  Company Number: US-AMGEN-USASP2025148113

PATIENT

DRUGS (1)
  1. PREDNISONE [Suspect]
     Active Substance: PREDNISONE
     Indication: Anaplastic large cell lymphoma T- and null-cell types
     Route: 065

REACTIONS (5)
  - Anaplastic large cell lymphoma T- and null-cell types [Fatal]
  - Infection [Fatal]
  - Lung neoplasm malignant [Fatal]
  - Graft versus host disease in lung [Fatal]
  - Death [Fatal]
